FAERS Safety Report 19170926 (Version 1)
Quarter: 2021Q2

REPORT INFORMATION
  Report Type: Spontaneous
  Country: CA (occurrence: CA)
  Receive Date: 20210423
  Receipt Date: 20210423
  Transmission Date: 20210717
  Serious: Yes (Other)
  Sender: FDA-Public Use
  Company Number: CA-JNJFOC-20210433091

PATIENT
  Age: 76 Year
  Sex: Female

DRUGS (1)
  1. TYLENOL ARTHRITIS PAIN [Suspect]
     Active Substance: ACETAMINOPHEN
     Indication: ARTHRALGIA
     Dosage: 2 CAPLETS PER DAY NOT EVERY DAY (ONLY WHEN WEATHER BOTHERS CONSUMER ? CONSUMER DOES NOT TAKE PRODUCT
     Route: 048
     Dates: start: 2019

REACTIONS (8)
  - Blister [Recovered/Resolved]
  - Urine analysis abnormal [Recovered/Resolved]
  - Butterfly rash [Recovered/Resolved]
  - Malaise [Recovered/Resolved]
  - Headache [Recovered/Resolved]
  - Pyrexia [Recovered/Resolved]
  - Gait disturbance [Recovered/Resolved]
  - Protein total abnormal [Recovered/Resolved]

NARRATIVE: CASE EVENT DATE: 20210215
